FAERS Safety Report 15808505 (Version 1)
Quarter: 2019Q1

REPORT INFORMATION
  Report Type: Spontaneous
  Country: US (occurrence: US)
  Receive Date: 20190110
  Receipt Date: 20190110
  Transmission Date: 20190417
  Serious: Yes (Hospitalization)
  Sender: FDA-Public Use
  Company Number: US-IHEALTH-2018-US-022292

PATIENT
  Age: 86 Year
  Sex: Female

DRUGS (1)
  1. AZO URINARY PAIN RELIEF MAXIMUM STRENGTH [Suspect]
     Active Substance: PHENAZOPYRIDINE HYDROCHLORIDE
     Indication: BLADDER DISCOMFORT
     Route: 048

REACTIONS (12)
  - Cystitis [Unknown]
  - Cardiac murmur [Unknown]
  - Feeling abnormal [Unknown]
  - Asthenia [Unknown]
  - Blood pressure increased [Recovered/Resolved]
  - Heart rate increased [Unknown]
  - Dehydration [Unknown]
  - Gait disturbance [Unknown]
  - Nervousness [Unknown]
  - Blood urine [Unknown]
  - Tremor [Unknown]
  - Feeding disorder [Unknown]
